FAERS Safety Report 9665214 (Version 1)
Quarter: 2013Q4

REPORT INFORMATION
  Report Type: Spontaneous
  Country: FR (occurrence: FR)
  Receive Date: 20131101
  Receipt Date: 20131101
  Transmission Date: 20140711
  Serious: Yes (Other)
  Sender: FDA-Public Use
  Company Number: PHHY2013FR121337

PATIENT
  Age: 39 Year
  Sex: Male
  Weight: 70 kg

DRUGS (3)
  1. AMOXICILLIN CLAVULANIC ACID SANDOZ [Suspect]
     Indication: ANTIBIOTIC PROPHYLAXIS
     Dosage: 2 G, ONCE/SINGLE
     Route: 042
     Dates: start: 20131014, end: 20131014
  2. XYLOCAINE [Concomitant]
     Route: 065
     Dates: start: 20131014
  3. ADRENALINE [Concomitant]
     Route: 065

REACTIONS (4)
  - Paraesthesia [Recovered/Resolved]
  - Generalised erythema [Recovered/Resolved]
  - Nausea [Recovered/Resolved]
  - Vomiting [Recovered/Resolved]
